FAERS Safety Report 5179523-6 (Version None)
Quarter: 2006Q4

REPORT INFORMATION
  Report Type: 
  Country: None (occurrence: None)
  Receive Date: 20061219
  Receipt Date: 20061212
  Transmission Date: 20070319
  Serious: Yes (Other)
  Sender: FDA-Public Use
  Company Number: US-ELI_LILLY_AND_COMPANY-US200612001837

PATIENT
  Age: 82 Year
  Sex: Female

DRUGS (2)
  1. XIGRIS [Suspect]
     Indication: SEPSIS
     Dosage: UNK, UNK
     Route: 042
     Dates: start: 20061211
  2. ANTIBIOTICS [Concomitant]

REACTIONS (2)
  - HEPATIC ENZYME ABNORMAL [None]
  - INTERNATIONAL NORMALISED RATIO INCREASED [None]
